FAERS Safety Report 9607404 (Version 1)
Quarter: 2013Q4

REPORT INFORMATION
  Report Type: Spontaneous
  Country: US (occurrence: None)
  Receive Date: 20131004
  Receipt Date: 20131004
  Transmission Date: 20140711
  Serious: Yes (Other)
  Sender: FDA-Public Use
  Company Number: AUR-APL-2013-07155

PATIENT
  Age: 64 Year
  Sex: Male

DRUGS (3)
  1. LEVETIRACETAM [Suspect]
     Indication: TRIGEMINAL NEURALGIA
  2. CARBAMAZEPINE [Suspect]
     Indication: TRIGEMINAL NEURALGIA
  3. OXCARBAZEPINE [Suspect]
     Indication: TRIGEMINAL NEURALGIA

REACTIONS (2)
  - Trigeminal neuralgia [None]
  - Treatment failure [None]
